FAERS Safety Report 7786647-3 (Version None)
Quarter: 2011Q3

REPORT INFORMATION
  Report Type: 
  Country: None (occurrence: None)
  Receive Date: 20110929
  Receipt Date: 20110927
  Transmission Date: 20111222
  Serious: Yes (Death, Other)
  Sender: FDA-Public Use
  Company Number: US-PFIZER INC-2008046315

PATIENT
  Sex: Male
  Weight: 74 kg

DRUGS (7)
  1. CHANTIX [Suspect]
     Indication: SMOKING CESSATION THERAPY
     Dosage: UNK
     Dates: start: 20071101
  2. TOPROL-XL [Concomitant]
     Dosage: 100 DAILY
  3. CHANTIX [Suspect]
     Dosage: 0.5MG/1MG
     Dates: start: 20080110, end: 20080221
  4. LOTREL [Concomitant]
     Dosage: 5/20 DAILY
  5. CHANTIX [Suspect]
     Dosage: 1 MG, 2X/DAY
     Route: 048
     Dates: start: 20080201
  6. AVALIDE [Concomitant]
     Dosage: 300/25 DAILY
  7. ZYPREXA [Concomitant]
     Dosage: 5 AT BEDTIME

REACTIONS (5)
  - DEPRESSION [None]
  - COMPLETED SUICIDE [None]
  - INSOMNIA [None]
  - ANXIETY [None]
  - ABNORMAL BEHAVIOUR [None]
